FAERS Safety Report 5670121-4 (Version None)
Quarter: 2008Q1

REPORT INFORMATION
  Report Type: 
  Country: None (occurrence: None)
  Receive Date: 20080317
  Receipt Date: 20080304
  Transmission Date: 20080703
  Serious: Yes (Hospitalization)
  Sender: FDA-Public Use
  Company Number: AU-AMGEN-QUU250142

PATIENT
  Age: 34 Year
  Sex: Female

DRUGS (4)
  1. NEULASTA [Suspect]
     Indication: CHEMOTHERAPY
     Route: 058
     Dates: start: 20070915, end: 20070915
  2. FLUOROURACIL [Concomitant]
     Route: 042
     Dates: start: 20070914, end: 20070914
  3. DOXORUBICIN HYDROCHLORIDE [Concomitant]
     Route: 042
     Dates: start: 20070914, end: 20070914
  4. CYCLOPHOSPHAMIDE [Concomitant]
     Route: 042
     Dates: start: 20070914, end: 20070914

REACTIONS (2)
  - DRUG INEFFECTIVE [None]
  - FEBRILE NEUTROPENIA [None]
